FAERS Safety Report 23654223 (Version 2)
Quarter: 2024Q2

REPORT INFORMATION
  Report Type: Spontaneous
  Country: PL (occurrence: PL)
  Receive Date: 20240320
  Receipt Date: 20240524
  Transmission Date: 20240716
  Serious: Yes (Other)
  Sender: FDA-Public Use
  Company Number: PL-AMGEN-POLSP2024051916

PATIENT
  Age: 30 Year
  Sex: Female

DRUGS (4)
  1. CINACALCET HYDROCHLORIDE [Suspect]
     Active Substance: CINACALCET HYDROCHLORIDE
     Indication: Hyperparathyroidism primary
     Dosage: 60 MILLIGRAM, QD (30 MG PER OS IN EVERY 12 H)
     Route: 065
  2. OXYCODONE [Concomitant]
     Active Substance: OXYCODONE\OXYCODONE HYDROCHLORIDE
     Indication: Pain
     Dosage: UNK
     Route: 065
  3. HEPARIN [Concomitant]
     Active Substance: HEPARIN SODIUM
     Indication: Hyperparathyroidism primary
     Dosage: UNK
     Route: 065
  4. MAGNESIUM SULFATE [Concomitant]
     Active Substance: MAGNESIUM SULFATE\MAGNESIUM SULFATE HEPTAHYDRATE
     Dosage: 4 GRAM, QD, 2 G IN EVERY 12 H
     Route: 065

REACTIONS (7)
  - Amniotic cavity infection [Unknown]
  - Parathyroid tumour benign [Unknown]
  - Drug effect less than expected [Unknown]
  - Adverse event [Unknown]
  - Placental disorder [Unknown]
  - Maternal exposure during pregnancy [Unknown]
  - Haemoglobin decreased [Unknown]
